FAERS Safety Report 22021848 (Version 13)
Quarter: 2025Q2

REPORT INFORMATION
  Report Type: Report from Study
  Country: CA (occurrence: CA)
  Receive Date: 20230222
  Receipt Date: 20250618
  Transmission Date: 20250716
  Serious: Yes (Other)
  Sender: PFIZER
  Company Number: CA-PFIZER INC-202300072029

PATIENT
  Age: 65 Year
  Sex: Male
  Weight: 73 kg

DRUGS (59)
  1. TRASTUZUMAB [Suspect]
     Active Substance: TRASTUZUMAB
     Indication: Gastrooesophageal cancer
     Dosage: 434 MG, EVERY 3 WEEKS
     Route: 042
  2. TRASTUZUMAB [Suspect]
     Active Substance: TRASTUZUMAB
     Dosage: 440 MG, EVERY 3 WEEKS
     Route: 042
  3. TRASTUZUMAB [Suspect]
     Active Substance: TRASTUZUMAB
     Dosage: 434 MG, EVERY 3 WEEKS
     Route: 042
  4. TRASTUZUMAB [Suspect]
     Active Substance: TRASTUZUMAB
     Route: 065
  5. TRASTUZUMAB [Suspect]
     Active Substance: TRASTUZUMAB
     Dosage: 440 MG, EVERY 3 WEEKS
     Route: 042
  6. TRASTUZUMAB [Suspect]
     Active Substance: TRASTUZUMAB
     Route: 042
  7. TRASTUZUMAB [Suspect]
     Active Substance: TRASTUZUMAB
     Route: 065
  8. TRASTUZUMAB [Suspect]
     Active Substance: TRASTUZUMAB
     Dosage: 420 MG, EVERY 3 WEEKS
     Route: 042
  9. TRASTUZUMAB [Suspect]
     Active Substance: TRASTUZUMAB
     Dosage: 426 MG, EVERY 3 WEEKS
     Route: 042
  10. TRASTUZUMAB [Suspect]
     Active Substance: TRASTUZUMAB
     Dosage: 440 MG, EVERY 3 WEEKS
     Route: 042
  11. TRASTUZUMAB [Suspect]
     Active Substance: TRASTUZUMAB
     Indication: Gastrooesophageal cancer
     Dosage: 578 MG, EVERY 3 WEEKS
     Route: 042
  12. TRASTUZUMAB [Suspect]
     Active Substance: TRASTUZUMAB
     Route: 042
  13. TRASTUZUMAB [Suspect]
     Active Substance: TRASTUZUMAB
     Route: 042
  14. TRASTUZUMAB [Suspect]
     Active Substance: TRASTUZUMAB
     Route: 042
  15. TRASTUZUMAB [Suspect]
     Active Substance: TRASTUZUMAB
     Route: 042
  16. TRASTUZUMAB [Suspect]
     Active Substance: TRASTUZUMAB
     Route: 042
  17. TRASTUZUMAB [Suspect]
     Active Substance: TRASTUZUMAB
     Route: 042
  18. TRASTUZUMAB [Suspect]
     Active Substance: TRASTUZUMAB
     Route: 042
  19. TRASTUZUMAB [Suspect]
     Active Substance: TRASTUZUMAB
     Route: 042
  20. TRASTUZUMAB [Suspect]
     Active Substance: TRASTUZUMAB
     Route: 042
  21. TRASTUZUMAB [Suspect]
     Active Substance: TRASTUZUMAB
     Route: 042
  22. TRASTUZUMAB [Suspect]
     Active Substance: TRASTUZUMAB
     Route: 042
  23. TRASTUZUMAB [Suspect]
     Active Substance: TRASTUZUMAB
     Route: 042
  24. TRASTUZUMAB [Suspect]
     Active Substance: TRASTUZUMAB
     Route: 042
  25. TRASTUZUMAB [Suspect]
     Active Substance: TRASTUZUMAB
     Route: 042
  26. TRASTUZUMAB [Suspect]
     Active Substance: TRASTUZUMAB
     Route: 042
  27. TRASTUZUMAB [Suspect]
     Active Substance: TRASTUZUMAB
     Route: 042
  28. TRASTUZUMAB [Suspect]
     Active Substance: TRASTUZUMAB
     Route: 042
  29. TRASTUZUMAB [Suspect]
     Active Substance: TRASTUZUMAB
     Route: 042
  30. TRASTUZUMAB [Suspect]
     Active Substance: TRASTUZUMAB
     Route: 042
  31. PERJETA [Suspect]
     Active Substance: PERTUZUMAB
     Indication: Gastrooesophageal cancer
     Dosage: 840 MG, EVERY 3 WEEKS
     Route: 042
  32. PERJETA [Suspect]
     Active Substance: PERTUZUMAB
     Dosage: 840 MG, EVERY 3 WEEKS
     Route: 042
  33. PERJETA [Suspect]
     Active Substance: PERTUZUMAB
     Dosage: 578 MG, EVERY 3 WEEKS
     Route: 042
  34. PERJETA [Suspect]
     Active Substance: PERTUZUMAB
     Route: 042
  35. PERJETA [Suspect]
     Active Substance: PERTUZUMAB
     Dosage: 840 MG, EVERY 3 WEEKS
     Route: 042
  36. PERJETA [Suspect]
     Active Substance: PERTUZUMAB
     Indication: Gastrooesophageal cancer
  37. PERJETA [Suspect]
     Active Substance: PERTUZUMAB
     Dosage: 840 MG, EVERY 3 WEEKS
     Route: 042
  38. PERJETA [Suspect]
     Active Substance: PERTUZUMAB
     Route: 042
  39. PERJETA [Suspect]
     Active Substance: PERTUZUMAB
     Route: 042
  40. PERJETA [Suspect]
     Active Substance: PERTUZUMAB
     Route: 042
  41. PERJETA [Suspect]
     Active Substance: PERTUZUMAB
     Route: 042
  42. PERJETA [Suspect]
     Active Substance: PERTUZUMAB
     Route: 042
  43. PERJETA [Suspect]
     Active Substance: PERTUZUMAB
     Route: 042
  44. PERJETA [Suspect]
     Active Substance: PERTUZUMAB
     Route: 042
  45. PERJETA [Suspect]
     Active Substance: PERTUZUMAB
     Route: 042
  46. PERJETA [Suspect]
     Active Substance: PERTUZUMAB
     Route: 042
  47. PERJETA [Suspect]
     Active Substance: PERTUZUMAB
     Route: 042
  48. PERJETA [Suspect]
     Active Substance: PERTUZUMAB
     Route: 042
  49. PERJETA [Suspect]
     Active Substance: PERTUZUMAB
     Route: 042
  50. PERJETA [Suspect]
     Active Substance: PERTUZUMAB
     Route: 042
  51. PERJETA [Suspect]
     Active Substance: PERTUZUMAB
     Route: 042
  52. PERJETA [Suspect]
     Active Substance: PERTUZUMAB
     Route: 042
  53. PERJETA [Suspect]
     Active Substance: PERTUZUMAB
     Route: 042
  54. PERJETA [Suspect]
     Active Substance: PERTUZUMAB
     Route: 042
  55. PERJETA [Suspect]
     Active Substance: PERTUZUMAB
     Route: 042
  56. ACETAMINOPHEN [Concomitant]
     Active Substance: ACETAMINOPHEN
     Indication: Premedication
     Route: 048
  57. ESOMEPRAZOLE [Concomitant]
     Active Substance: ESOMEPRAZOLE
  58. FAMCICLOVIR [Concomitant]
     Active Substance: FAMCICLOVIR
     Indication: Rash
     Dosage: UNK, 3X/DAY
     Route: 065
  59. FAMCICLOVIR [Concomitant]
     Active Substance: FAMCICLOVIR

REACTIONS (15)
  - Blood pressure diastolic abnormal [Recovered/Resolved]
  - Blood pressure diastolic decreased [Recovered/Resolved]
  - Blood pressure systolic abnormal [Recovered/Resolved]
  - Blood pressure systolic increased [Recovered/Resolved]
  - Cough [Recovered/Resolved]
  - Decreased appetite [Recovered/Resolved]
  - Influenza like illness [Recovered/Resolved]
  - Nasal congestion [Recovered/Resolved]
  - Oropharyngeal pain [Recovered/Resolved]
  - Pyrexia [Recovered/Resolved]
  - Weight decreased [Recovered/Resolved]
  - Pneumonia [Recovered/Resolved]
  - Oxygen saturation decreased [Recovered/Resolved]
  - Heart rate decreased [Recovered/Resolved]
  - Weight increased [Recovered/Resolved]
